FAERS Safety Report 19383957 (Version 2)
Quarter: 2021Q3

REPORT INFORMATION
  Report Type: Spontaneous
  Country: GB (occurrence: GB)
  Receive Date: 20210608
  Receipt Date: 20210803
  Transmission Date: 20211014
  Serious: Yes (Other)
  Sender: FDA-Public Use
  Company Number: GB-AUROBINDO-AUR-APL-2021-022927

PATIENT
  Sex: Female

DRUGS (4)
  1. ASTRAZENECA COVID?19 VACCINE [Suspect]
     Active Substance: AZD-1222
     Dosage: SECOND VACCINE
     Route: 065
  2. CETIRIZINE [Suspect]
     Active Substance: CETIRIZINE HYDROCHLORIDE
     Indication: PRODUCT USED FOR UNKNOWN INDICATION
     Dosage: 10 MILLIGRAM
     Route: 065
  3. ASTRAZENECA COVID?19 VACCINE [Suspect]
     Active Substance: AZD-1222
     Dosage: 1 DOSAGE FORM(DOSE 1)
     Route: 065
  4. ASTRAZENECA COVID?19 VACCINE [Suspect]
     Active Substance: AZD-1222
     Indication: PRODUCT USED FOR UNKNOWN INDICATION
     Dosage: 1 DOSAGE FORM(DOSE 1)
     Route: 065

REACTIONS (5)
  - Wheezing [Recovering/Resolving]
  - Swelling [Recovered/Resolved]
  - Malaise [Recovering/Resolving]
  - Chest discomfort [Recovering/Resolving]
  - Vaccination complication [Recovering/Resolving]
